FAERS Safety Report 8548054-5 (Version None)
Quarter: 2012Q3

REPORT INFORMATION
  Report Type: 
  Country: None (occurrence: None)
  Receive Date: 20120730
  Receipt Date: 20120725
  Transmission Date: 20120928
  Serious: Yes (Other)
  Sender: FDA-Public Use
  Company Number: FR-AMGEN-FRASP2012046301

PATIENT
  Sex: Male

DRUGS (1)
  1. VECTIBIX [Suspect]
     Indication: COLON CANCER METASTATIC
     Dosage: UNK
     Dates: start: 20110801, end: 20111101

REACTIONS (3)
  - ANAPHYLACTIC REACTION [None]
  - HYPERSENSITIVITY [None]
  - URTICARIA [None]
